FAERS Safety Report 8386854-5 (Version None)
Quarter: 2012Q2

REPORT INFORMATION
  Report Type: 
  Country: None (occurrence: None)
  Receive Date: 20120525
  Receipt Date: 20120518
  Transmission Date: 20120825
  Serious: Yes (Hospitalization)
  Sender: FDA-Public Use
  Company Number: US-B.I. PHARMACEUTICALS,INC./RIDGEFIELD-2012-BP-11195BP

PATIENT
  Sex: Female

DRUGS (2)
  1. PRADAXA [Suspect]
     Indication: ATRIAL FIBRILLATION
     Dosage: 300 MG
     Route: 048
     Dates: end: 20120501
  2. PRADAXA [Suspect]
     Dosage: 150 MG
     Route: 048

REACTIONS (4)
  - DYSPNOEA [None]
  - ASTHENIA [None]
  - DIZZINESS [None]
  - PERICARDIAL EFFUSION [None]
